FAERS Safety Report 9467647 (Version 1)
Quarter: 2013Q3

REPORT INFORMATION
  Report Type: Spontaneous
  Country: US (occurrence: None)
  Receive Date: 20130819
  Receipt Date: 20130819
  Transmission Date: 20140515
  Serious: Yes (Disabling)
  Sender: FDA-Public Use
  Company Number: None

PATIENT
  Age: 32 Year
  Sex: Female
  Weight: 63.5 kg

DRUGS (2)
  1. CIPROFLOXACIN [Suspect]
     Indication: URINARY TRACT INFECTION
     Dosage: 500 MG  TWICE DAILY  TAKEN BY MOUTH
     Route: 048
     Dates: start: 20120803, end: 20120810
  2. CIPROFLOXACIN [Suspect]
     Indication: SINUSITIS
     Dosage: 500 MG  TWICE DAILY  TAKEN BY MOUTH
     Route: 048
     Dates: start: 20120803, end: 20120810

REACTIONS (7)
  - Hypoaesthesia [None]
  - Paraesthesia [None]
  - Swelling [None]
  - Pain in extremity [None]
  - Tendon rupture [None]
  - Plantar fasciitis [None]
  - Neuropathy peripheral [None]
